FAERS Safety Report 23521934 (Version 1)
Quarter: 2024Q1

REPORT INFORMATION
  Report Type: Spontaneous
  Country: US (occurrence: None)
  Receive Date: 20240213
  Receipt Date: 20240213
  Transmission Date: 20240409
  Serious: Yes (Other)
  Sender: FDA-Public Use
  Company Number: None

PATIENT
  Age: 62 Year
  Sex: Female
  Weight: 83.7 kg

DRUGS (14)
  1. WEGOVY [Suspect]
     Active Substance: SEMAGLUTIDE
     Indication: Multiple drug therapy
  2. WEGOVY [Suspect]
     Active Substance: SEMAGLUTIDE
     Indication: Weight decreased
  3. SAXENDA [Suspect]
     Active Substance: LIRAGLUTIDE
     Indication: Multiple drug therapy
  4. SAXENDA [Suspect]
     Active Substance: LIRAGLUTIDE
     Indication: Weight decreased
  5. TRINTELLIX [Concomitant]
     Active Substance: VORTIOXETINE HYDROBROMIDE
  6. SUNOSI [Concomitant]
     Active Substance: SOLRIAMFETOL
  7. XARELTO [Concomitant]
     Active Substance: RIVAROXABAN
  8. DEVICE [Concomitant]
     Active Substance: DEVICE
  9. FISH OIL [Concomitant]
     Active Substance: FISH OIL
  10. women^s over 55 multivitamin [Concomitant]
  11. CALCIUM [Concomitant]
     Active Substance: CALCIUM
  12. MAGNESIUM [Concomitant]
     Active Substance: MAGNESIUM
  13. ZINC [Concomitant]
     Active Substance: PYRITHIONE ZINC\ZINC\ZINC CHLORIDE
  14. VITAMIN C [Concomitant]
     Active Substance: ASCORBIC ACID

REACTIONS (6)
  - Product availability issue [None]
  - Nausea [None]
  - Gastrooesophageal reflux disease [None]
  - Vomiting [None]
  - Product substitution issue [None]
  - Dyspepsia [None]

NARRATIVE: CASE EVENT DATE: 20240205
